FAERS Safety Report 18248245 (Version 3)
Quarter: 2020Q4

REPORT INFORMATION
  Report Type: Spontaneous
  Country: US (occurrence: US)
  Receive Date: 20200909
  Receipt Date: 20201104
  Transmission Date: 20210113
  Serious: No
  Sender: FDA-Public Use
  Company Number: US-LEXICON PHARMACEUTICALS, INC-20-1606-00704

PATIENT
  Age: 61 Year
  Sex: Male

DRUGS (1)
  1. XERMELO [Suspect]
     Active Substance: TELOTRISTAT ETHYL
     Indication: CARCINOID SYNDROME
     Dates: start: 20200817

REACTIONS (2)
  - Off label use [Not Recovered/Not Resolved]
  - Food intolerance [Recovering/Resolving]

NARRATIVE: CASE EVENT DATE: 202008
